FAERS Safety Report 7325921-1 (Version None)
Quarter: 2011Q1

REPORT INFORMATION
  Report Type: 
  Country: None (occurrence: None)
  Receive Date: 20110302
  Receipt Date: 20110222
  Transmission Date: 20110831
  Serious: Yes (Hospitalization)
  Sender: FDA-Public Use
  Company Number: US-JNJFOC-20110207198

PATIENT
  Sex: Male
  Weight: 92 kg

DRUGS (3)
  1. VORINOSTAT [Suspect]
     Indication: MULTIPLE MYELOMA
     Route: 048
  2. DOXIL [Suspect]
     Indication: MULTIPLE MYELOMA
     Route: 042
  3. VELCADE [Suspect]
     Indication: MULTIPLE MYELOMA
     Route: 042

REACTIONS (1)
  - SYNCOPE [None]
